FAERS Safety Report 5583187-7 (Version None)
Quarter: 2008Q1

REPORT INFORMATION
  Report Type: 
  Country: None (occurrence: None)
  Receive Date: 20080107
  Receipt Date: 20071114
  Transmission Date: 20080703
  Serious: Yes (Other)
  Sender: FDA-Public Use
  Company Number: US-PURDUE-USA_2007_0030621

PATIENT
  Age: 43 Year
  Sex: Female

DRUGS (1)
  1. OXYCONTIN [Suspect]
     Indication: BACK PAIN
     Dosage: 80 MG, TID
     Dates: start: 19990430, end: 20010601

REACTIONS (6)
  - AMNESIA [None]
  - DRUG DEPENDENCE [None]
  - HALLUCINATION [None]
  - INSOMNIA [None]
  - NERVE INJURY [None]
  - TREMOR [None]
